FAERS Safety Report 14412129 (Version 2)
Quarter: 2018Q1

REPORT INFORMATION
  Report Type: Report from Study
  Country: CO (occurrence: CO)
  Receive Date: 20180119
  Receipt Date: 20180119
  Transmission Date: 20180509
  Serious: Yes (Other)
  Sender: FDA-Public Use
  Company Number: PHHY2017CO011343

PATIENT
  Age: 58 Year
  Sex: Female
  Weight: 90 kg

DRUGS (4)
  1. SANDOSTATIN LAR DEPOT [Suspect]
     Active Substance: OCTREOTIDE ACETATE
     Indication: ACROMEGALY
     Dosage: 30 MG, QMO
     Route: 030
     Dates: start: 20160810, end: 201710
  2. GLIBENCLAMIDE [Concomitant]
     Active Substance: GLYBURIDE
     Indication: PRODUCT USED FOR UNKNOWN INDICATION
     Route: 065
  3. METFORMIN [Suspect]
     Active Substance: METFORMIN HYDROCHLORIDE
     Indication: PRODUCT USED FOR UNKNOWN INDICATION
     Dosage: UNK
     Route: 065
  4. SANDOSTATIN LAR DEPOT [Suspect]
     Active Substance: OCTREOTIDE ACETATE
     Indication: PITUITARY TUMOUR

REACTIONS (16)
  - Pain [Unknown]
  - Blood growth hormone increased [Unknown]
  - Feeling abnormal [Unknown]
  - Onychoclasis [Unknown]
  - Eye pain [Unknown]
  - Elephantiasis [Unknown]
  - Asthenia [Unknown]
  - Drug ineffective [Unknown]
  - Neoplasm [Unknown]
  - Alopecia [Unknown]
  - Finger deformity [Unknown]
  - Swelling [Unknown]
  - Pain in extremity [Unknown]
  - Prognathism [Unknown]
  - Bone pain [Unknown]
  - Benign neoplasm of optic nerve [Unknown]

NARRATIVE: CASE EVENT DATE: 20170201
